FAERS Safety Report 26086550 (Version 1)
Quarter: 2025Q4

REPORT INFORMATION
  Report Type: Spontaneous
  Country: US (occurrence: US)
  Receive Date: 20251125
  Receipt Date: 20251125
  Transmission Date: 20260118
  Serious: Yes (Other)
  Sender: AMGEN
  Company Number: US-AMGEN-USASP2025230024

PATIENT

DRUGS (2)
  1. ROMIPLOSTIM [Suspect]
     Active Substance: ROMIPLOSTIM
     Indication: Immune thrombocytopenia
     Dosage: UNK, MICROGRAM/KILOGRAM
     Route: 065
  2. RITUXIMAB [Suspect]
     Active Substance: RITUXIMAB
     Indication: Immune thrombocytopenia
     Dosage: UNK
     Route: 065

REACTIONS (12)
  - Central nervous system haemorrhage [Unknown]
  - Gastrointestinal haemorrhage [Unknown]
  - Pulmonary embolism [Unknown]
  - Epistaxis [Unknown]
  - Haematoma [Unknown]
  - Petechiae [Unknown]
  - Skin haemorrhage [Unknown]
  - Haematuria [Unknown]
  - Heavy menstrual bleeding [Unknown]
  - Mouth haemorrhage [Unknown]
  - Ecchymosis [Unknown]
  - Haemorrhage [Unknown]
